FAERS Safety Report 19929845 (Version 2)
Quarter: 2024Q1

REPORT INFORMATION
  Report Type: Spontaneous
  Country: AT (occurrence: AT)
  Receive Date: 20211007
  Receipt Date: 20240207
  Transmission Date: 20240410
  Serious: Yes (Hospitalization, Other)
  Sender: FDA-Public Use
  Company Number: AT-ROCHE-2520357

PATIENT
  Age: 54 Year
  Sex: Female
  Weight: 75 kg

DRUGS (103)
  1. ONTRUZANT [Suspect]
     Active Substance: TRASTUZUMAB-DTTB
     Indication: HER2 positive breast cancer
     Dosage: MOST RECENT DOSE PRIOR TO THE EVENT: 11/OCT/2019, INFUSION, SOLUTION
     Route: 042
     Dates: start: 20180328, end: 20180328
  2. ONTRUZANT [Suspect]
     Active Substance: TRASTUZUMAB-DTTB
     Dosage: INFUSION, SOLUTION
     Route: 042
     Dates: start: 20180423, end: 20180423
  3. ONTRUZANT [Suspect]
     Active Substance: TRASTUZUMAB-DTTB
     Dosage: INFUSION, SOLUTION
     Route: 042
     Dates: start: 20180515, end: 20180515
  4. ONTRUZANT [Suspect]
     Active Substance: TRASTUZUMAB-DTTB
     Dosage: INFUSION, SOLUTION
     Route: 042
     Dates: start: 20180626, end: 20181010
  5. ONTRUZANT [Suspect]
     Active Substance: TRASTUZUMAB-DTTB
     Dosage: INFUSION, SOLUTION
     Route: 042
     Dates: start: 20181102, end: 20181123
  6. ONTRUZANT [Suspect]
     Active Substance: TRASTUZUMAB-DTTB
     Dosage: MOST RECENT DOSE WAS RECEIVED ON 09/JAN/2019, INFUSION, SOLUTION
     Route: 042
     Dates: start: 20181123
  7. ONTRUZANT [Suspect]
     Active Substance: TRASTUZUMAB-DTTB
     Dosage: INFUSION, SOLUTION
     Route: 042
     Dates: start: 20181214, end: 20190109
  8. ONTRUZANT [Suspect]
     Active Substance: TRASTUZUMAB-DTTB
     Dosage: INFUSION, SOLUTION
     Route: 042
     Dates: start: 20190119, end: 20200129
  9. ONTRUZANT [Suspect]
     Active Substance: TRASTUZUMAB-DTTB
     Dosage: INFUSION, SOLUTION
     Route: 042
     Dates: start: 20191011, end: 20191025
  10. XELODA [Suspect]
     Active Substance: CAPECITABINE
     Indication: HER2 positive breast cancer
     Dosage: 500 MG, FREQUENCY: OTHER MOST RECENT DOSE PRIOR TO THE EVENT: 19/DEC/2019
     Route: 048
     Dates: start: 20191126, end: 20191218
  11. XELODA [Suspect]
     Active Substance: CAPECITABINE
     Dosage: OTHER
     Route: 048
     Dates: start: 20191219
  12. PACLITAXEL [Suspect]
     Active Substance: PACLITAXEL
     Indication: HER2 positive breast cancer
     Route: 042
     Dates: start: 20180328, end: 20180409
  13. PACLITAXEL [Suspect]
     Active Substance: PACLITAXEL
     Route: 042
     Dates: start: 20180416, end: 20180508
  14. PACLITAXEL [Suspect]
     Active Substance: PACLITAXEL
     Route: 042
     Dates: start: 20180515, end: 20180515
  15. PACLITAXEL [Suspect]
     Active Substance: PACLITAXEL
     Route: 042
     Dates: start: 20180522, end: 20180529
  16. PACLITAXEL [Suspect]
     Active Substance: PACLITAXEL
     Route: 042
     Dates: start: 20180605, end: 20190515
  17. PACLITAXEL [Suspect]
     Active Substance: PACLITAXEL
     Route: 042
     Dates: start: 20180612, end: 20180612
  18. PACLITAXEL [Suspect]
     Active Substance: PACLITAXEL
     Route: 042
     Dates: start: 20180626, end: 20180718
  19. PACLITAXEL [Suspect]
     Active Substance: PACLITAXEL
     Route: 042
     Dates: start: 20181102, end: 20181123
  20. PACLITAXEL [Suspect]
     Active Substance: PACLITAXEL
     Route: 042
     Dates: start: 20181207, end: 20181221
  21. PACLITAXEL [Suspect]
     Active Substance: PACLITAXEL
     Route: 042
     Dates: start: 20190102, end: 20190515
  22. PACLITAXEL [Suspect]
     Active Substance: PACLITAXEL
     Route: 042
     Dates: start: 20190109, end: 20190109
  23. PACLITAXEL [Suspect]
     Active Substance: PACLITAXEL
     Route: 042
     Dates: start: 20190116, end: 20190116
  24. METHOTREXATE [Suspect]
     Active Substance: METHOTREXATE
     Indication: HER2 positive breast cancer
     Dosage: 2.5 MG, 0.5 WEEK, MOST RECENT DOSE ON 09-MAR-2020
     Route: 048
     Dates: start: 20200219, end: 20200309
  25. NAVELBINE [Suspect]
     Active Substance: VINORELBINE TARTRATE
     Indication: HER2 positive breast cancer
     Dosage: RECENT DOSE: 28/OCT/2019
     Route: 048
     Dates: start: 20191011, end: 20191025
  26. NERATINIB [Suspect]
     Active Substance: NERATINIB
     Indication: HER2 positive breast cancer
     Dosage: FREQUENCY: O.D. - ONCE DAILY MOST RECENT DOSE PRIOR TO THE EVENT: 19/JAN/2020
     Route: 048
     Dates: start: 20200108, end: 20200118
  27. NERATINIB [Suspect]
     Active Substance: NERATINIB
     Route: 048
     Dates: start: 20200119, end: 20200129
  28. ABRAXANE [Suspect]
     Active Substance: PACLITAXEL
     Indication: HER2 positive breast cancer
     Dosage: DOSE ON 08-MAY-2018AND MOST RECENT DOSE PRIOR TO THE EVENT: 07-DEC-2018
     Route: 042
     Dates: start: 20180416
  29. ADO-TRASTUZUMAB EMTANSINE [Suspect]
     Active Substance: ADO-TRASTUZUMAB EMTANSINE
     Indication: HER2 positive breast cancer
     Dosage: DOSE ON 17-MAY-2019 MOST RECENT DOSE PRIOR TO THE EVENT: 11-MAR-2020, INFUSION, SOLUTION
     Route: 042
     Dates: start: 20210228
  30. ADO-TRASTUZUMAB EMTANSINE [Suspect]
     Active Substance: ADO-TRASTUZUMAB EMTANSINE
     Dosage: DOSE ON 17-MAY-2019 AND MOST RECENT DOSE PRIOR TO THE EVENT: 28-JUN-2019, INFUSION, SOLUTION
     Route: 042
     Dates: start: 20190131
  31. ADO-TRASTUZUMAB EMTANSINE [Suspect]
     Active Substance: ADO-TRASTUZUMAB EMTANSINE
     Dosage: (DOSE ON 17-MAY-2019 AND MOST RECENT DOSE PRIOR TO THE EVENT: 28-JUN-2019, INFUSION, SOLUTION)
     Route: 042
     Dates: start: 20190131, end: 20190517
  32. TAXOL [Suspect]
     Active Substance: PACLITAXEL
     Indication: HER2 positive breast cancer
     Dosage: WEEKLY, RECENT DOSE ON 09/APR/2018
     Route: 042
     Dates: start: 20180328, end: 20180409
  33. TAXOL [Suspect]
     Active Substance: PACLITAXEL
     Route: 042
     Dates: start: 20190116, end: 20190116
  34. TAXOL [Suspect]
     Active Substance: PACLITAXEL
     Route: 042
     Dates: start: 20180416, end: 20180508
  35. TAXOL [Suspect]
     Active Substance: PACLITAXEL
     Route: 042
     Dates: start: 20180626, end: 20180718
  36. TAXOL [Suspect]
     Active Substance: PACLITAXEL
     Route: 042
     Dates: start: 20181102, end: 20181123
  37. TAXOL [Suspect]
     Active Substance: PACLITAXEL
     Route: 042
     Dates: start: 20180612, end: 20180612
  38. TAXOL [Suspect]
     Active Substance: PACLITAXEL
     Route: 042
     Dates: start: 20180522, end: 20180529
  39. TAXOL [Suspect]
     Active Substance: PACLITAXEL
     Route: 042
     Dates: start: 20190102, end: 20190515
  40. TAXOL [Suspect]
     Active Substance: PACLITAXEL
     Route: 042
     Dates: start: 20181207, end: 20181221
  41. TAXOL [Suspect]
     Active Substance: PACLITAXEL
     Route: 042
     Dates: start: 20180515, end: 20180515
  42. TAXOL [Suspect]
     Active Substance: PACLITAXEL
     Route: 042
     Dates: start: 20190109, end: 20190109
  43. TAXOL [Suspect]
     Active Substance: PACLITAXEL
     Route: 042
     Dates: start: 20180605, end: 20190515
  44. PERTUZUMAB [Suspect]
     Active Substance: PERTUZUMAB
     Indication: HER2 positive breast cancer
     Dosage: MOST RECENT DOSE PRIOR TO THE EVENT: 14/DEC/2018, INFUSION, SOLUTION
     Route: 042
     Dates: start: 20180328, end: 20180328
  45. PERTUZUMAB [Suspect]
     Active Substance: PERTUZUMAB
     Dosage: 420 MG, 3 WEEKS, INFUSION, SOLUTION
     Route: 042
     Dates: start: 20180423, end: 20180423
  46. PERTUZUMAB [Suspect]
     Active Substance: PERTUZUMAB
     Dosage: INFUSION, SOLUTION
     Route: 042
     Dates: start: 20181214, end: 20190109
  47. CYCLOPHOSPHAMIDE [Suspect]
     Active Substance: CYCLOPHOSPHAMIDE
     Indication: HER2 positive breast cancer
     Dosage: 50 MG, QD, MOST RECENT DOSE ON 09/MAR/2020
     Route: 048
     Dates: start: 20200219, end: 20200309
  48. NERLYNX [Suspect]
     Active Substance: NERATINIB
     Indication: Product used for unknown indication
     Route: 065
  49. PERJETA [Suspect]
     Active Substance: PERTUZUMAB
     Indication: HER2 positive breast cancer
     Route: 042
     Dates: start: 20180423, end: 20180423
  50. PERJETA [Suspect]
     Active Substance: PERTUZUMAB
     Dosage: MOST RECENT DOSE PRIOR TO THE EVENT: 23/APR/2018, 14/DEC/2018, 11/OCT/2019
     Route: 042
     Dates: start: 20180328, end: 20180328
  51. PERJETA [Suspect]
     Active Substance: PERTUZUMAB
     Route: 042
     Dates: start: 20181214, end: 20190109
  52. CYTOXAN [Suspect]
     Active Substance: CYCLOPHOSPHAMIDE
     Indication: HER2 positive breast cancer
     Dosage: MOST RECENT DOSE PRIOR TO AE 09/MAR/2020
     Route: 048
     Dates: start: 20200219
  53. HERCEPTIN [Suspect]
     Active Substance: TRASTUZUMAB
     Indication: HER2 positive breast cancer
     Route: 042
     Dates: start: 20181214, end: 20190109
  54. HERCEPTIN [Suspect]
     Active Substance: TRASTUZUMAB
     Route: 042
     Dates: start: 20180626, end: 20181010
  55. HERCEPTIN [Suspect]
     Active Substance: TRASTUZUMAB
     Route: 042
     Dates: start: 20180515, end: 20180515
  56. HERCEPTIN [Suspect]
     Active Substance: TRASTUZUMAB
     Route: 042
     Dates: start: 20180328, end: 20180328
  57. HERCEPTIN [Suspect]
     Active Substance: TRASTUZUMAB
     Route: 042
     Dates: start: 20181102, end: 20181123
  58. HERCEPTIN [Suspect]
     Active Substance: TRASTUZUMAB
     Route: 042
     Dates: start: 20180423, end: 20180423
  59. HERCEPTIN [Suspect]
     Active Substance: TRASTUZUMAB
     Route: 042
     Dates: start: 20190119, end: 20200129
  60. HERCEPTIN [Suspect]
     Active Substance: TRASTUZUMAB
     Route: 042
     Dates: start: 20191011, end: 20191025
  61. TREXALL [Suspect]
     Active Substance: METHOTREXATE SODIUM
     Indication: HER2 positive breast cancer
     Dosage: MOST RECENT DOSE PRIOR TO AE 09/MAR/2020
     Route: 048
     Dates: start: 20200219
  62. XGEVA [Suspect]
     Active Substance: DENOSUMAB
     Indication: HER2 positive breast cancer
     Route: 058
     Dates: start: 20190425
  63. PACLITAXEL [Suspect]
     Active Substance: PACLITAXEL
     Indication: HER2 positive breast cancer
     Route: 042
     Dates: start: 20181207, end: 20181221
  64. PACLITAXEL [Suspect]
     Active Substance: PACLITAXEL
     Route: 042
     Dates: start: 20180605, end: 20180605
  65. PACLITAXEL [Suspect]
     Active Substance: PACLITAXEL
     Route: 042
     Dates: start: 20180612, end: 20180619
  66. PACLITAXEL [Suspect]
     Active Substance: PACLITAXEL
     Route: 042
     Dates: start: 20181102, end: 20181123
  67. PACLITAXEL [Suspect]
     Active Substance: PACLITAXEL
     Route: 042
     Dates: start: 20180626, end: 20180718
  68. PACLITAXEL [Suspect]
     Active Substance: PACLITAXEL
     Route: 042
     Dates: start: 20190116, end: 20190116
  69. PACLITAXEL [Suspect]
     Active Substance: PACLITAXEL
     Route: 042
     Dates: start: 20180515, end: 20180515
  70. PACLITAXEL [Suspect]
     Active Substance: PACLITAXEL
     Dosage: FREQUENCY: WEEKLY MOST RECENT DOSE PRIOR TO THE EVENT: 26-JUN-2018
     Route: 042
     Dates: start: 20180416, end: 20180508
  71. PACLITAXEL [Suspect]
     Active Substance: PACLITAXEL
     Route: 042
     Dates: start: 20190102, end: 20190102
  72. PACLITAXEL [Suspect]
     Active Substance: PACLITAXEL
     Route: 042
     Dates: start: 20180522, end: 20180529
  73. PACLITAXEL [Suspect]
     Active Substance: PACLITAXEL
     Route: 042
     Dates: start: 20190109, end: 20190109
  74. KADCYLA [Suspect]
     Active Substance: ADO-TRASTUZUMAB EMTANSINE
     Indication: HER2 positive breast cancer
     Dosage: DOSE ON MOST RECENT DOSE PRIOR TO THE EVENT: 28-JUN-2019
     Route: 042
     Dates: start: 20190131, end: 20190517
  75. KADCYLA [Suspect]
     Active Substance: ADO-TRASTUZUMAB EMTANSINE
     Dosage: DOSE ON 17-MAY-2019 MOST RECENT DOSE PRIOR TO THE EVENT: 11-MAR-2020
     Route: 042
     Dates: start: 20210228
  76. HYDROMORPHONE HYDROCHLORIDE [Concomitant]
     Active Substance: HYDROMORPHONE HYDROCHLORIDE
     Indication: Product used for unknown indication
     Dosage: UNKNOWN
     Route: 065
     Dates: start: 20200228, end: 20200311
  77. HYDROMORPHONE HYDROCHLORIDE [Concomitant]
     Active Substance: HYDROMORPHONE HYDROCHLORIDE
     Dosage: UNKNOWN
     Route: 065
     Dates: start: 20200228, end: 20200410
  78. HYDROMORPHONE HYDROCHLORIDE [Concomitant]
     Active Substance: HYDROMORPHONE HYDROCHLORIDE
     Dosage: UNKNOWN
     Route: 065
     Dates: start: 20200311, end: 20200410
  79. CALCIUM CARBONATE\CHOLECALCIFEROL [Concomitant]
     Active Substance: CALCIUM CARBONATE\CHOLECALCIFEROL
     Indication: Product used for unknown indication
     Dosage: ONGOING-CHECKED, UNKNOWN
     Route: 065
     Dates: start: 20190425
  80. ZOFRAN [Concomitant]
     Active Substance: ONDANSETRON HYDROCHLORIDE
     Indication: Product used for unknown indication
     Dosage: UNKNOWN
     Route: 065
  81. DEXAMETHASONE [Concomitant]
     Active Substance: DEXAMETHASONE
     Indication: Product used for unknown indication
     Route: 065
     Dates: start: 20190628, end: 20190830
  82. HYDROMORPHONE HYDROCHLORIDE [Concomitant]
     Active Substance: HYDROMORPHONE HYDROCHLORIDE
     Indication: Product used for unknown indication
     Dosage: UNKNOWN
     Route: 065
  83. OCTENISEPT [OCTENIDINE HYDROCHLORIDE;PHENOXYETHANOL] [Concomitant]
     Indication: Onycholysis
     Dosage: UNKNOWN
     Route: 065
     Dates: start: 20180725
  84. KYTRIL [Concomitant]
     Active Substance: GRANISETRON HYDROCHLORIDE
     Indication: Product used for unknown indication
     Dosage: ONGOING NOT CHECKED, UNKNOWN
     Route: 065
     Dates: start: 20190628, end: 20190830
  85. PANTOPRAZOLE SODIUM [Concomitant]
     Active Substance: PANTOPRAZOLE SODIUM
     Indication: Gastrointestinal disorder prophylaxis
     Dosage: ONGOING CHECKED, UNKNOWN
     Route: 065
     Dates: start: 20191011, end: 20200410
  86. DEXPANTHENOL\HYALURONATE SODIUM [Concomitant]
     Active Substance: DEXPANTHENOL\HYALURONATE SODIUM
     Indication: Conjunctivitis
     Dosage: UNKNOWN
     Route: 065
     Dates: start: 20180619
  87. NOVALGINA [Concomitant]
     Active Substance: ACETAMINOPHEN\CAFFEINE
     Indication: Product used for unknown indication
     Dosage: UNKNOWN
     Route: 065
     Dates: start: 20200224, end: 20200410
  88. XGEVA [Concomitant]
     Active Substance: DENOSUMAB
     Indication: Product used for unknown indication
     Dosage: UNKNOWN
     Route: 065
     Dates: start: 20191219, end: 20200410
  89. DEXPANTHENOL [Concomitant]
     Active Substance: DEXPANTHENOL
     Indication: Onycholysis
     Dosage: UNKNOWN
     Route: 065
     Dates: start: 20180725, end: 2018
  90. DEXPANTHENOL [Concomitant]
     Active Substance: DEXPANTHENOL
     Dosage: UNKNOWN
     Route: 065
     Dates: start: 20180619, end: 201806
  91. LOPERAMIDE HYDROCHLORIDE [Concomitant]
     Active Substance: LOPERAMIDE HYDROCHLORIDE
     Indication: Product used for unknown indication
     Dosage: UNKNOWN
     Route: 065
     Dates: start: 20200108, end: 20200113
  92. DIMETHINDENE MALEATE [Concomitant]
     Active Substance: DIMETHINDENE MALEATE
     Indication: Prophylaxis
     Route: 065
     Dates: start: 20181102, end: 20190109
  93. CALCIDURAN [ASCORBIC ACID;CALCIUM PHOSPHATE;CITRIC ACID;COLECALCIFEROL [Concomitant]
     Indication: Product used for unknown indication
     Dosage: UNKNOWN
     Route: 065
     Dates: start: 20180612, end: 20190425
  94. SOLU DACORTIN [Concomitant]
     Indication: Product used for unknown indication
     Route: 065
     Dates: start: 20180409, end: 20180409
  95. DEXABENE [Concomitant]
     Indication: Prophylaxis
     Route: 065
     Dates: start: 20181102, end: 20190109
  96. RANITIDINE HYDROCHLORIDE [Concomitant]
     Active Substance: RANITIDINE HYDROCHLORIDE
     Indication: Prophylaxis
     Route: 065
     Dates: start: 20180328, end: 20180409
  97. RANITIDINE HYDROCHLORIDE [Concomitant]
     Active Substance: RANITIDINE HYDROCHLORIDE
     Route: 065
     Dates: start: 20180423, end: 20180801
  98. GENTAMICIN [Concomitant]
     Active Substance: GENTAMICIN
     Indication: Product used for unknown indication
     Dosage: UNKNOWN
     Route: 065
     Dates: end: 20180626
  99. DIMETHINDENE [Concomitant]
     Active Substance: DIMETHINDENE
     Indication: Prophylaxis
     Route: 065
     Dates: start: 20180423, end: 20180801
  100. DIMETHINDENE [Concomitant]
     Active Substance: DIMETHINDENE
     Route: 065
     Dates: start: 20180328, end: 20180409
  101. MYCOSTATIN [Concomitant]
     Active Substance: NYSTATIN
     Indication: Stomatitis
     Dosage: ONGOING = NOT CHECKED
     Route: 065
     Dates: start: 20191029, end: 20191104
  102. OCTENIDINE HYDROCHLORIDE [Concomitant]
     Active Substance: OCTENIDINE HYDROCHLORIDE
     Indication: Product used for unknown indication
     Dosage: UNKNOWN
     Route: 065
  103. NITROLINGUAL [Concomitant]
     Active Substance: NITROGLYCERIN
     Indication: Product used for unknown indication
     Dosage: UNKNOWN, 1 PUFF
     Route: 065
     Dates: start: 20180409, end: 20180409

REACTIONS (14)
  - Dyspnoea [Recovered/Resolved]
  - Febrile neutropenia [Recovered/Resolved]
  - Breast cancer metastatic [Recovering/Resolving]
  - Tumour pain [Recovered/Resolved]
  - Intentional product use issue [Unknown]
  - Overdose [Unknown]
  - Off label use [Recovered/Resolved]
  - Stomatitis [Recovered/Resolved]
  - C-reactive protein increased [Recovered/Resolved]
  - Pain of skin [Recovered/Resolved]
  - Diarrhoea [Recovered/Resolved]
  - Nausea [Unknown]
  - Fatigue [Recovered/Resolved]
  - Product use issue [Unknown]

NARRATIVE: CASE EVENT DATE: 20180408
